FAERS Safety Report 9553071 (Version 1)
Quarter: 2013Q3

REPORT INFORMATION
  Report Type: Spontaneous
  Country: US (occurrence: None)
  Receive Date: 20130724
  Receipt Date: 20130724
  Transmission Date: 20140515
  Serious: Yes (Hospitalization)
  Sender: FDA-Public Use
  Company Number: PHEH2012US020305

PATIENT
  Age: 59 Year
  Sex: Female
  Weight: 58.97 kg

DRUGS (4)
  1. GLEEVEC [Suspect]
     Indication: ACUTE LYMPHOCYTIC LEUKAEMIA
     Route: 048
     Dates: start: 20120920, end: 20121002
  2. BACTRIM [Concomitant]
  3. MERCAPTOPURINE (MERCAPTOPURINE) [Concomitant]
  4. VALACICLOVIR HYDROCHLORIDE (VALACICLOVIR HYDROCHLORIDE) [Concomitant]

REACTIONS (1)
  - Pancreatitis [None]
